FAERS Safety Report 8065853-7 (Version None)
Quarter: 2012Q1

REPORT INFORMATION
  Report Type: 
  Country: None (occurrence: None)
  Receive Date: 20120124
  Receipt Date: 20120120
  Transmission Date: 20120608
  Serious: Yes (Life-Threatening, Hospitalization)
  Sender: FDA-Public Use
  Company Number: CA-SANOFI-AVENTIS-2012SA004387

PATIENT
  Age: 35 Year
  Sex: Female
  Weight: 88.3 kg

DRUGS (8)
  1. DOCETAXEL [Suspect]
     Indication: BREAST CANCER
     Dosage: DOSE: 150 MG;FORMS:VIAL
     Route: 042
     Dates: start: 20101013
  2. CARBOPLATIN [Suspect]
     Indication: BREAST CANCER
     Dosage: DOSE LEVEL:6AUC;FORMS:VIAL
     Route: 042
     Dates: start: 20101013
  3. LEVOTHYROXINE SODIUM [Concomitant]
     Dates: start: 20060101
  4. TRASTUZUMAB [Suspect]
     Indication: BREAST CANCER
     Dosage: LOADING DOSE;TOTAL DOSE :720 MG
     Route: 042
     Dates: start: 20101013
  5. PERCOCET [Concomitant]
     Dates: start: 20100914
  6. BEVACIZUMAB [Suspect]
     Indication: BREAST CANCER
     Dosage: TOTAL DOSE:1350 MG;FORMS:VIALS
     Route: 042
     Dates: start: 20101013
  7. TRASTUZUMAB [Suspect]
     Dosage: LOADING DOSE;TOTAL DOSE :720 MG
     Route: 042
     Dates: start: 20101013
  8. ESOMEPRAZOLE [Concomitant]
     Dates: start: 20100914

REACTIONS (2)
  - CAECITIS [None]
  - FEBRILE NEUTROPENIA [None]
